FAERS Safety Report 8854673 (Version 1)
Quarter: 2012Q4

REPORT INFORMATION
  Report Type: 
  Country: US (occurrence: US)
  Receive Date: 20121023
  Receipt Date: 20121023
  Transmission Date: 20130627
  Serious: No
  Sender: FDA-Public Use
  Company Number: US-MYLANLABS-2012S1018071

PATIENT
  Age: 70 Year
  Sex: Male

DRUGS (4)
  1. ALFUZOSIN HYDROCHLORIDE EXTENDED RELEASE [Suspect]
     Indication: BENIGN PROSTATIC HYPERPLASIA
     Route: 048
     Dates: start: 20120626, end: 20120907
  2. BLOOD PRESSURE MEDICATION [Concomitant]
  3. KCL [Concomitant]
  4. VITAMINS [Concomitant]

REACTIONS (3)
  - Dizziness [Recovered/Resolved]
  - Gingival bleeding [Recovered/Resolved]
  - Fatigue [Recovered/Resolved]
